FAERS Safety Report 19658147 (Version 4)
Quarter: 2021Q3

REPORT INFORMATION
  Report Type: Spontaneous
  Country: CZ (occurrence: CZ)
  Receive Date: 20210805
  Receipt Date: 20210920
  Transmission Date: 20211014
  Serious: Yes (Hospitalization, Other)
  Sender: FDA-Public Use
  Company Number: CZ-AUROBINDO-AUR-APL-2021-032892

PATIENT
  Age: 34 Year
  Sex: Male
  Weight: 117 kg

DRUGS (16)
  1. OLANZAPINE ORALDISPERSIBLE TABLET [Suspect]
     Active Substance: OLANZAPINE
     Indication: SCHIZOPHRENIA
     Dosage: 20 MILLIGRAM, UNK
     Route: 065
  2. BREXPIPRAZOLE [Concomitant]
     Active Substance: BREXPIPRAZOLE
     Indication: SCHIZOPHRENIA
     Dosage: UNK
     Route: 065
  3. BREXPIPRAZOLE [Concomitant]
     Active Substance: BREXPIPRAZOLE
     Dosage: 4 MILLIGRAM, ONCE A DAY
     Route: 065
  4. ARIPIPRAZOLE. [Suspect]
     Active Substance: ARIPIPRAZOLE
     Indication: SCHIZOPHRENIA
     Dosage: 30 MILLIGRAM, UNK
     Route: 065
  5. OLANZAPINE ORALDISPERSIBLE TABLET [Suspect]
     Active Substance: OLANZAPINE
     Dosage: UNK
     Route: 065
  6. CLOZAPINE. [Concomitant]
     Active Substance: CLOZAPINE
     Indication: SCHIZOPHRENIA
     Dosage: UNK
     Route: 065
  7. OLANZAPINE PAMOATE [Suspect]
     Active Substance: OLANZAPINE PAMOATE
     Dosage: 300 MILLIGRAM, 1 MONTH (GRADUALLY REDUCED THE DOSE TO 300 MILLIGRAM)
     Route: 030
  8. OLANZAPINE PAMOATE [Suspect]
     Active Substance: OLANZAPINE PAMOATE
     Indication: SCHIZOPHRENIA
     Dosage: UNK
     Route: 065
  9. OLANZAPINE PAMOATE [Suspect]
     Active Substance: OLANZAPINE PAMOATE
     Dosage: 105 MILLIGRAM, UNK
     Route: 065
  10. BREXPIPRAZOLE [Concomitant]
     Active Substance: BREXPIPRAZOLE
     Dosage: 1 MILLIGRAM ONCE IN A WEEK (AFTER EVERY WEEK)
     Route: 065
  11. BREXPIPRAZOLE [Concomitant]
     Active Substance: BREXPIPRAZOLE
     Dosage: 2 MILLIGRAM, ONCE A DAY(INITIAL DOSE)
     Route: 065
  12. SERTINDOLE [Concomitant]
     Active Substance: SERTINDOLE
     Indication: SCHIZOPHRENIA
     Dosage: UNK
     Route: 065
  13. QUETIAPINE. [Concomitant]
     Active Substance: QUETIAPINE
     Indication: SCHIZOPHRENIA
     Dosage: UNK
     Route: 065
  14. OLANZAPINE PAMOATE [Suspect]
     Active Substance: OLANZAPINE PAMOATE
     Dosage: 210 MILLIGRAM, 1 MONTH
     Route: 030
     Dates: end: 2018
  15. OLANZAPINE PAMOATE [Suspect]
     Active Substance: OLANZAPINE PAMOATE
     Dosage: 405 MILLIGRAM, 1 MONTH
     Route: 065
     Dates: start: 201504
  16. OLANZAPINE PAMOATE [Suspect]
     Active Substance: OLANZAPINE PAMOATE
     Dosage: 407 MILLIGRAM, 1 MONTH, 407 MILLIGRAM DEPOT 1X PER MONTH AND AND GRADUALLY REDUCED THE DOSE TO 300 M
     Route: 030
     Dates: start: 201504

REACTIONS (5)
  - Adverse drug reaction [Unknown]
  - Treatment noncompliance [Recovered/Resolved]
  - Schizophrenia [Unknown]
  - Drug ineffective [Unknown]
  - Weight increased [Recovering/Resolving]
